FAERS Safety Report 8011756-3 (Version None)
Quarter: 2011Q4

REPORT INFORMATION
  Report Type: 
  Country: None (occurrence: None)
  Receive Date: 20111228
  Receipt Date: 20111219
  Transmission Date: 20120403
  Serious: Yes (Other)
  Sender: FDA-Public Use
  Company Number: US-BAYER-2011-111181

PATIENT
  Age: 22 Year
  Sex: Female
  Weight: 68.027 kg

DRUGS (7)
  1. TORADOL [Concomitant]
     Dosage: UNK
     Route: 048
     Dates: start: 20100125
  2. IBUPROFEN [Concomitant]
     Dosage: 600 MG, UNK
     Route: 048
     Dates: start: 20091201
  3. FLEXERIL [Concomitant]
     Dosage: 10 MG, HS
     Route: 048
     Dates: start: 20100125
  4. NEXIUM [Concomitant]
     Dosage: 40 MG, UNK
  5. YAZ [Suspect]
     Indication: MENSTRUATION IRREGULAR
     Dosage: UNK
     Route: 048
     Dates: start: 20090401, end: 20100801
  6. OMEPRAZOLE [Concomitant]
     Dosage: UNK
     Route: 048
     Dates: start: 20100107
  7. FLUOXETINE HYDROCHLORIDE [Concomitant]
     Dosage: 20 MG, UNK
     Route: 048
     Dates: start: 20090918, end: 20100305

REACTIONS (7)
  - REFLUX GASTRITIS [None]
  - CHOLECYSTITIS CHRONIC [None]
  - INJURY [None]
  - COSTOCHONDRITIS [None]
  - ABDOMINAL PAIN UPPER [None]
  - CHEST PAIN [None]
  - CHOLELITHIASIS [None]
